FAERS Safety Report 5397461-0 (Version None)
Quarter: 2007Q3

REPORT INFORMATION
  Report Type: 
  Country: None (occurrence: None)
  Receive Date: 20070726
  Receipt Date: 20070716
  Transmission Date: 20080115
  Serious: Yes (Death)
  Sender: FDA-Public Use
  Company Number: GB-NOVOPROD-265685

PATIENT
  Age: 85 Year
  Sex: Female

DRUGS (9)
  1. MIXTARD HUMAN 70/30 [Suspect]
     Indication: DRUG USE FOR UNKNOWN INDICATION
     Route: 042
  2. GLUCOSE 5% BRAUN [Suspect]
     Route: 042
  3. LEVOTHYROXINE SODIUM [Concomitant]
     Indication: HYPOTHYROIDISM
  4. AMLODIPINE [Concomitant]
     Indication: HYPERTENSION
  5. LIPITOR [Concomitant]
     Indication: HYPERCHOLESTEROLAEMIA
  6. ASPIRIN [Concomitant]
     Indication: CEREBROVASCULAR ACCIDENT
  7. LAXATIVES [Concomitant]
     Indication: DIVERTICULUM INTESTINAL
  8. HYDROCORTISONE [Concomitant]
     Dosage: 150 MG, UNK
  9. PANTOPRAZOLE SODIUM [Concomitant]

REACTIONS (1)
  - NEUROGLYCOPENIA [None]
